FAERS Safety Report 9438939 (Version 1)
Quarter: 2013Q3

REPORT INFORMATION
  Report Type: Spontaneous
  Country: US (occurrence: US)
  Receive Date: 20130802
  Receipt Date: 20130802
  Transmission Date: 20140515
  Serious: Yes (Other)
  Sender: FDA-Public Use
  Company Number: US-NOVEN-13US007359

PATIENT
  Age: 9 Year
  Sex: Female
  Weight: 27.21 kg

DRUGS (2)
  1. DAYTRANA [Suspect]
     Indication: ATTENTION DEFICIT/HYPERACTIVITY DISORDER
     Dosage: 10 MG QD ON SCHOOL DAYS
     Route: 062
     Dates: start: 20121025, end: 20130601
  2. DAYTRANA [Suspect]
     Dosage: 10 MG, SINGLE DOSE
     Route: 062
     Dates: start: 20130626, end: 20130626

REACTIONS (3)
  - Suicidal ideation [Not Recovered/Not Resolved]
  - Amnesia [Not Recovered/Not Resolved]
  - Aggression [Not Recovered/Not Resolved]
